FAERS Safety Report 4800789-3 (Version None)
Quarter: 2005Q3

REPORT INFORMATION
  Report Type: 
  Country: None (occurrence: None)
  Receive Date: 20050929
  Receipt Date: 20050722
  Transmission Date: 20060218
  Serious: No
  Sender: FDA-Public Use
  Company Number: 05P-163-0306417-00

PATIENT
  Age: 75 Year
  Sex: Female
  Weight: 76.6579 kg

DRUGS (9)
  1. HUMIRA [Suspect]
     Indication: RHEUMATOID ARTHRITIS
     Dosage: 40 MG, 1 IN 2 WK, SUBCUTANEOUS
     Route: 058
     Dates: start: 20050531
  2. CELECOXIB [Concomitant]
  3. METHOTREXATE [Concomitant]
  4. FOLIC ACID [Concomitant]
  5. ZOCOR [Concomitant]
  6. PREDNISONE [Concomitant]
  7. ESTROGENS [Concomitant]
  8. AMITRIPTYLINE HCL [Concomitant]
  9. LISINOPRIL [Concomitant]

REACTIONS (1)
  - COUGH [None]
